FAERS Safety Report 4741407-2 (Version None)
Quarter: 2005Q3

REPORT INFORMATION
  Report Type: 
  Country: None (occurrence: None)
  Receive Date: 20050810
  Receipt Date: 20050726
  Transmission Date: 20060218
  Serious: Yes (Death)
  Sender: FDA-Public Use
  Company Number: PHFR2005GB02575

PATIENT
  Age: 72 Year
  Sex: Male

DRUGS (16)
  1. GLEEVEC [Suspect]
     Indication: GASTROINTESTINAL STROMAL TUMOUR
     Dosage: UNK, UNK
     Route: 048
     Dates: start: 20050614
  2. CO-PROXAMOL [Concomitant]
     Indication: PAIN
     Dosage: UNK, PRN
     Route: 048
  3. GAVISCON                                /GFR/ [Concomitant]
     Indication: REFLUX GASTRITIS
     Dosage: UNK, PRN
     Route: 048
  4. ASPIRIN [Concomitant]
     Indication: CARDIAC DISORDER
     Dosage: 75 MG, QD
     Route: 048
  5. BECLOMETHASONE DIPROPIONATE [Concomitant]
     Indication: CHRONIC OBSTRUCTIVE PULMONARY DISEASE
     Dosage: UNK, BID
  6. LIPOSTAT 10% [Concomitant]
     Indication: BLOOD CHOLESTEROL
     Dosage: 10 MG/DAY
     Route: 048
  7. COMBIVENT                               /GFR/ [Concomitant]
     Indication: CHRONIC OBSTRUCTIVE PULMONARY DISEASE
     Dosage: UNK, QID
  8. UPRIMA [Concomitant]
     Indication: ERECTILE DYSFUNCTION
     Dosage: 2 MG
     Route: 060
  9. FUROSEMIDE [Concomitant]
     Indication: HYPERTENSION
     Dosage: 40 MG/DAY
     Route: 048
  10. LANSOPRAZOLE [Concomitant]
     Indication: REFLUX OESOPHAGITIS
     Dosage: 30 MG/DAY
     Route: 048
  11. KETOPROFEN [Concomitant]
     Indication: RHEUMATOID ARTHRITIS
     Dosage: 50 MG/DAY
     Route: 048
  12. ENALAPRIL [Concomitant]
     Indication: HYPERTENSION
     Dosage: 10 MG/DAY
     Route: 048
  13. ALBUTEROL SULFATE HFA [Concomitant]
     Indication: ASTHMA
     Dosage: UNK, PRN
  14. METHOTREXATE [Concomitant]
     Indication: RHEUMATOID ARTHRITIS
     Dosage: 5 MG, QW2
     Route: 048
  15. TETRACYCLINE [Concomitant]
     Indication: ROSACEA
     Dosage: 250 MG/DAY
     Route: 048
  16. FOLIC ACID [Concomitant]
     Dosage: 5 MG/DAY
     Route: 048

REACTIONS (1)
  - MYOCARDIAL INFARCTION [None]
